FAERS Safety Report 4388985-3 (Version None)
Quarter: 2004Q2

REPORT INFORMATION
  Report Type: 
  Country: None (occurrence: None)
  Receive Date: 20040628
  Receipt Date: 20040617
  Transmission Date: 20050107
  Serious: Yes (Other)
  Sender: FDA-Public Use
  Company Number: HQWYE506217JUN04

PATIENT
  Age: 65 Year
  Sex: Female

DRUGS (2)
  1. CONTROLOC (PANTOPRAZOLE, TABLET, DELAYED RELEASE) [Suspect]
     Indication: DUODENAL ULCER
     Dosage: 40 MG 2X PER 1 DAY
     Route: 048
     Dates: start: 20040301, end: 20040329
  2. CONTROLOC (PANTOPRAZOLE, INJECTION) [Suspect]
     Indication: DUODENAL ULCER
     Dosage: SEE IMAGE
     Route: 042

REACTIONS (6)
  - ERYTHEMA [None]
  - HYPERSENSITIVITY [None]
  - PHARMACEUTICAL PRODUCT COMPLAINT [None]
  - PRURITUS [None]
  - RASH GENERALISED [None]
  - RASH MACULO-PAPULAR [None]
